FAERS Safety Report 8505248 (Version 2)
Quarter: 2012Q4

REPORT INFORMATION
  Report Type: 
  Country: US (occurrence: US)
  Receive Date: 20120412
  Receipt Date: 20121012
  Transmission Date: 20130627
  Serious: Yes (Hospitalization)
  Sender: FDA-Public Use
  Company Number: US-US-EMD SERONO, INC.-7124261

PATIENT
  Age: 58 Year
  Sex: Male

DRUGS (3)
  1. REBIF [Suspect]
     Indication: MULTIPLE SCLEROSIS
     Route: 058
     Dates: start: 20050125, end: 201107
  2. REBIF [Suspect]
     Route: 058
  3. UNSPECIFIED MEDICATION [Concomitant]
     Indication: DIABETES MELLITUS

REACTIONS (1)
  - Burns third degree [Not Recovered/Not Resolved]
